FAERS Safety Report 23906247 (Version 3)
Quarter: 2024Q3

REPORT INFORMATION
  Report Type: Report from Study
  Country: US (occurrence: US)
  Receive Date: 20240528
  Receipt Date: 20240702
  Transmission Date: 20241016
  Serious: Yes (Other)
  Sender: ABBVIE
  Company Number: US-ABBVIE-5774230

PATIENT
  Age: 73 Year
  Sex: Male

DRUGS (1)
  1. SKYRIZI [Suspect]
     Active Substance: RISANKIZUMAB-RZAA
     Indication: Crohn^s disease
     Route: 058
     Dates: start: 20231030

REACTIONS (7)
  - Glaucoma [Recovered/Resolved]
  - Chronic obstructive pulmonary disease [Recovering/Resolving]
  - Unevaluable event [Recovering/Resolving]
  - Crohn^s disease [Recovered/Resolved]
  - Device use issue [Unknown]
  - Stoma site discharge [Unknown]
  - Eye infection [Recovered/Resolved]

NARRATIVE: CASE EVENT DATE: 20231030
